FAERS Safety Report 12832120 (Version 8)
Quarter: 2016Q4

REPORT INFORMATION
  Report Type: Report from Study
  Country: CA (occurrence: CA)
  Receive Date: 20161010
  Receipt Date: 20161205
  Transmission Date: 20170207
  Serious: Yes (Death, Hospitalization, Other)
  Sender: FDA-Public Use
  Company Number: PHHY2014CA138693

PATIENT
  Age: 66 Year
  Sex: Male

DRUGS (11)
  1. ONDANSETRON [Suspect]
     Active Substance: ONDANSETRON
     Indication: NAUSEA
     Dosage: 8 MG, QD
     Route: 065
  2. TEMOZOLOMIDE. [Suspect]
     Active Substance: TEMOZOLOMIDE
     Dosage: 1 DF, QD, SECOND ROUND IN THE EVENING ON DAY 10 OF THE CAPECITABINE
     Route: 065
  3. STREPTOZOCIN [Concomitant]
     Active Substance: STREPTOZOCIN
     Indication: PRODUCT USED FOR UNKNOWN INDICATION
     Dosage: UNK
     Route: 065
     Dates: start: 20150202, end: 20150206
  4. DEXAMETHASONE. [Suspect]
     Active Substance: DEXAMETHASONE
     Indication: NAUSEA
     Dosage: 8 MG, QD
     Route: 065
  5. COUMARIN [Concomitant]
     Active Substance: COUMARIN
     Indication: PRODUCT USED FOR UNKNOWN INDICATION
     Dosage: 2 MG, QD
     Route: 065
  6. SANDOSTATIN LAR DEPOT [Suspect]
     Active Substance: OCTREOTIDE ACETATE
     Dosage: 30 MG,EVERY 3 WEEKS
     Route: 030
     Dates: start: 20150106, end: 20161114
  7. COUMADINE [Concomitant]
     Active Substance: WARFARIN SODIUM
     Indication: PRODUCT USED FOR UNKNOWN INDICATION
     Dosage: UNK
     Route: 065
  8. 5 FU [Concomitant]
     Active Substance: FLUOROURACIL
     Indication: PRODUCT USED FOR UNKNOWN INDICATION
     Dosage: UNK
     Route: 065
     Dates: start: 20150202, end: 20150206
  9. SANDOSTATIN LAR DEPOT [Suspect]
     Active Substance: OCTREOTIDE ACETATE
     Indication: NEUROENDOCRINE TUMOUR
     Dosage: 30 MG, QMO (EVERY 4 WEEKS)
     Route: 030
     Dates: start: 20140912
  10. SANDOSTATIN [Suspect]
     Active Substance: OCTREOTIDE ACETATE
     Indication: NEUROENDOCRINE TUMOUR
     Dosage: 0. MCG, TEST DOSE, ONCE/SINGLE
     Route: 058
     Dates: start: 20140911, end: 20140911
  11. TEMOZOLOMIDE. [Suspect]
     Active Substance: TEMOZOLOMIDE
     Indication: MALIGNANT NEOPLASM PROGRESSION
     Dosage: 1 DF, QD, IN THE EVENING (270 MG ONE TABLET ONCE A DAY )
     Route: 065

REACTIONS (61)
  - Feeling cold [Unknown]
  - Peripheral swelling [Recovering/Resolving]
  - Nocturia [Unknown]
  - Confusional state [Unknown]
  - Fatigue [Unknown]
  - Frequent bowel movements [Recovering/Resolving]
  - Faeces pale [Unknown]
  - Flatulence [Unknown]
  - Tricuspid valve disease [Unknown]
  - Haemorrhoids [Unknown]
  - Skin exfoliation [Recovered/Resolved]
  - Cognitive disorder [Unknown]
  - Serum serotonin increased [Unknown]
  - Hunger [Unknown]
  - Muscle spasms [Recovering/Resolving]
  - Muscular weakness [Unknown]
  - Inappropriate schedule of drug administration [Unknown]
  - Cachexia [Unknown]
  - Hot flush [Unknown]
  - Myalgia [Unknown]
  - Hypoaesthesia oral [Recovering/Resolving]
  - Radiculopathy [Unknown]
  - Gait disturbance [Recovering/Resolving]
  - Weight decreased [Recovering/Resolving]
  - Musculoskeletal chest pain [Unknown]
  - Diarrhoea [Recovering/Resolving]
  - Asthenia [Unknown]
  - Oedema [Recovering/Resolving]
  - Decreased appetite [Unknown]
  - Injection site pain [Recovered/Resolved]
  - Haematochezia [Recovering/Resolving]
  - Hypoaesthesia [Recovering/Resolving]
  - Pain in extremity [Recovering/Resolving]
  - Blood pressure diastolic decreased [Unknown]
  - Pain [Unknown]
  - Insomnia [Unknown]
  - Retching [Unknown]
  - Heart rate irregular [Not Recovered/Not Resolved]
  - Rash [Recovered/Resolved]
  - Drug ineffective [Unknown]
  - Malignant neoplasm progression [Unknown]
  - Haemorrhoidal haemorrhage [Unknown]
  - Blood pressure systolic increased [Unknown]
  - Chills [Unknown]
  - Flushing [Unknown]
  - Erythema [Recovered/Resolved]
  - Paraesthesia [Unknown]
  - International normalised ratio increased [Unknown]
  - Death [Fatal]
  - Peripheral swelling [Recovered/Resolved]
  - Cardiac valve disease [Unknown]
  - Heart rate increased [Unknown]
  - Nausea [Unknown]
  - Dizziness [Unknown]
  - Product use issue [Unknown]
  - Metastases to thorax [Unknown]
  - Thrombosis [Unknown]
  - Amnesia [Unknown]
  - Vertigo [Unknown]
  - Blood pressure abnormal [Unknown]
  - Abdominal pain [Unknown]

NARRATIVE: CASE EVENT DATE: 2014
